FAERS Safety Report 16212131 (Version 2)
Quarter: 2019Q2

REPORT INFORMATION
  Report Type: Spontaneous
  Country: JP (occurrence: JP)
  Receive Date: 20190418
  Receipt Date: 20190513
  Transmission Date: 20190711
  Serious: Yes (Other)
  Sender: FDA-Public Use
  Company Number: JP-BAYER-2019-079142

PATIENT
  Age: 51 Year
  Sex: Female

DRUGS (2)
  1. STIVARGA [Suspect]
     Active Substance: REGORAFENIB
     Indication: COLON CANCER
     Dosage: 160 MG, QD
     Route: 048
     Dates: start: 20190313
  2. MYSER [CYCLOSERINE] [Concomitant]
     Active Substance: CYCLOSERINE

REACTIONS (4)
  - Palmar-plantar erythrodysaesthesia syndrome [Recovering/Resolving]
  - Blood bilirubin increased [Recovering/Resolving]
  - Metastases to liver [None]
  - Erythema [Recovering/Resolving]

NARRATIVE: CASE EVENT DATE: 20190320
